FAERS Safety Report 4664623-7 (Version None)
Quarter: 2005Q2

REPORT INFORMATION
  Report Type: 
  Country: None (occurrence: None)
  Receive Date: 20050518
  Receipt Date: 20031222
  Transmission Date: 20051028
  Serious: Yes (Other)
  Sender: FDA-Public Use
  Company Number: US-ROCHE-355236

PATIENT
  Age: 53 Year
  Sex: Female
  Weight: 108.9 kg

DRUGS (5)
  1. PEGASYS [Suspect]
     Dosage: 0.5 CC ADMINISTERED.
     Route: 058
     Dates: start: 20031215, end: 20040615
  2. PEGASYS [Suspect]
     Route: 058
     Dates: start: 20040615, end: 20040815
  3. COPEGUS [Suspect]
     Dosage: DOSAGE REGIMEN: 2AM 2PM
     Route: 048
     Dates: start: 20031215, end: 20040815
  4. PROTONIX [Concomitant]
     Dosage: DRUG NAME REPORTED AS: PROTONICS
     Route: 048
  5. BENADRYL [Concomitant]
     Route: 048

REACTIONS (22)
  - ADRENAL DISORDER [None]
  - ANAEMIA [None]
  - ASTHENIA [None]
  - BREAST MASS [None]
  - COUGH [None]
  - DIZZINESS [None]
  - FATIGUE [None]
  - HEPATIC CIRRHOSIS [None]
  - HEPATIC PAIN [None]
  - HIV INFECTION [None]
  - HYPOTRICHOSIS [None]
  - NO THERAPEUTIC RESPONSE [None]
  - PLATELET COUNT DECREASED [None]
  - PNEUMONIA [None]
  - PRURITUS [None]
  - PYREXIA [None]
  - RASH [None]
  - RED BLOOD CELL COUNT DECREASED [None]
  - THERAPY NON-RESPONDER [None]
  - VIRAL LOAD INCREASED [None]
  - WEIGHT DECREASED [None]
  - WHITE BLOOD CELL COUNT DECREASED [None]
